FAERS Safety Report 9612027 (Version 2)
Quarter: 2013Q4

REPORT INFORMATION
  Report Type: Spontaneous
  Country: US (occurrence: US)
  Receive Date: 20131010
  Receipt Date: 20131018
  Transmission Date: 20140711
  Serious: No
  Sender: FDA-Public Use
  Company Number: US-BAYER-2013-122116

PATIENT
  Age: 67 Year
  Sex: Female
  Weight: 68.03 kg

DRUGS (1)
  1. ALEVE CAPLET [Suspect]
     Dosage: 2 DF, OTHER
     Route: 048

REACTIONS (4)
  - Abdominal discomfort [Recovered/Resolved]
  - Abdominal pain upper [Recovered/Resolved]
  - Diarrhoea [Recovered/Resolved]
  - Dyspepsia [Recovered/Resolved]
